FAERS Safety Report 4864166-1 (Version None)
Quarter: 2005Q4

REPORT INFORMATION
  Report Type: 
  Country: None (occurrence: None)
  Receive Date: 20051222
  Receipt Date: 20051221
  Transmission Date: 20060501
  Serious: Yes (Other)
  Sender: FDA-Public Use
  Company Number: ES-GLAXOSMITHKLINE-B0404613A

PATIENT
  Age: 42 Year
  Sex: Male

DRUGS (3)
  1. AUGMENTIN [Suspect]
     Indication: COLITIS
     Dosage: 500MG THREE TIMES PER DAY
     Dates: start: 20050826, end: 20050827
  2. CIPROFLOXACIN [Suspect]
     Indication: COLITIS
     Dosage: .5G THREE TIMES PER DAY
     Route: 048
     Dates: start: 20050827, end: 20050829
  3. METAMIZOLE [Suspect]
     Indication: COLITIS
     Dosage: 1.7G PER DAY
     Route: 048

REACTIONS (3)
  - CHOLURIA [None]
  - HEPATITIS [None]
  - JAUNDICE [None]
